FAERS Safety Report 9919246 (Version 2)
Quarter: 2014Q1

REPORT INFORMATION
  Report Type: Spontaneous
  Country: KW (occurrence: KW)
  Receive Date: 20140224
  Receipt Date: 20140312
  Transmission Date: 20141002
  Serious: Yes (Other)
  Sender: FDA-Public Use
  Company Number: KW-VERTEX PHARMACEUTICALS INC-2014-000918

PATIENT
  Age: 36 Year
  Sex: Male

DRUGS (3)
  1. INCIVO [Suspect]
     Indication: HEPATITIS C
     Dosage: 750 MG, TID
     Route: 048
  2. PEGASYS [Suspect]
     Indication: HEPATITIS C
     Dosage: UNK
     Route: 065
  3. COPEGUS [Suspect]
     Indication: HEPATITIS C
     Dosage: 1200 MG, UNK
     Route: 065

REACTIONS (1)
  - Rash [Recovered/Resolved]
